FAERS Safety Report 7443800-6 (Version None)
Quarter: 2011Q2

REPORT INFORMATION
  Report Type: 
  Country: None (occurrence: None)
  Receive Date: 20110428
  Receipt Date: 20110113
  Transmission Date: 20111010
  Serious: Yes (Hospitalization)
  Sender: FDA-Public Use
  Company Number: EE-MERCK-1101USA00039

PATIENT
  Age: 36 Year
  Sex: Female
  Weight: 60 kg

DRUGS (17)
  1. OMEPRAZOLE [Concomitant]
     Route: 048
  2. AMLOCARD [Concomitant]
     Indication: HYPERTENSION
     Route: 048
  3. NEORECORMON [Concomitant]
     Route: 065
  4. ISENTRESS [Suspect]
     Indication: ANTIRETROVIRAL THERAPY
     Route: 048
     Dates: start: 20101207
  5. AMLOCARD [Concomitant]
     Indication: CARDIAC FAILURE
     Route: 048
  6. ROCALTROL [Concomitant]
     Route: 048
  7. INSULIN [Concomitant]
     Route: 065
  8. NEORAL [Concomitant]
     Indication: DIABETES MELLITUS
     Route: 048
  9. MONOPRIL [Concomitant]
     Indication: CARDIAC FAILURE
     Route: 048
  10. MONOPRIL [Concomitant]
     Indication: HYPERTENSION
     Route: 048
  11. ISENTRESS [Suspect]
     Indication: HIV INFECTION
     Route: 048
     Dates: start: 20101207
  12. NORVIR [Concomitant]
     Indication: ANTIRETROVIRAL THERAPY
     Route: 048
     Dates: start: 20101207
  13. FUROSEMIDE [Concomitant]
     Indication: CARDIAC FAILURE
     Route: 048
  14. CELLCEPT [Concomitant]
     Route: 048
  15. FUROSEMIDE [Concomitant]
     Indication: HYPERTENSION
     Route: 048
  16. CALCIGRAN SINE [Concomitant]
     Route: 048
  17. PREZISTA [Concomitant]
     Indication: ANTIRETROVIRAL THERAPY
     Route: 048
     Dates: start: 20101207

REACTIONS (2)
  - BLOOD CREATININE INCREASED [None]
  - NAUSEA [None]
